FAERS Safety Report 4752979-6 (Version None)
Quarter: 2005Q3

REPORT INFORMATION
  Report Type: 
  Country: None (occurrence: None)
  Receive Date: 20050825
  Receipt Date: 20050810
  Transmission Date: 20060218
  Serious: Yes (Death)
  Sender: FDA-Public Use
  Company Number: USA0508105094

PATIENT
  Sex: Male

DRUGS (1)
  1. GEMZAR [Suspect]
     Indication: LUNG NEOPLASM MALIGNANT
     Dates: start: 20041001, end: 20041101

REACTIONS (4)
  - BURNING SENSATION [None]
  - DYSPNOEA [None]
  - HALLUCINATION [None]
  - LUNG DISORDER [None]
